FAERS Safety Report 8783524 (Version 1)
Quarter: 2012Q4

REPORT INFORMATION
  Report Type: 
  Country: US (occurrence: US)
  Receive Date: 20120913
  Receipt Date: 20120913
  Transmission Date: 20130627
  Serious: Yes (Other)
  Sender: FDA-Public Use
  Company Number: US-AMGEN-USASP2012057474

PATIENT
  Age: 55 Year
  Sex: Male
  Weight: 56.82 kg

DRUGS (5)
  1. VECTIBIX [Suspect]
     Indication: COLORECTAL CANCER METASTATIC
     Dosage: 351 UNK, UNK
  2. FOLINIC ACID [Concomitant]
     Indication: COLORECTAL CANCER METASTATIC
  3. FLUOROURACIL [Concomitant]
     Indication: COLORECTAL CANCER METASTATIC
  4. IRINOTECAN [Concomitant]
     Indication: COLORECTAL CANCER METASTATIC
  5. AVASTIN                            /01555201/ [Concomitant]
     Indication: COLORECTAL CANCER METASTATIC

REACTIONS (1)
  - Platelet count decreased [Not Recovered/Not Resolved]
